FAERS Safety Report 13795079 (Version 3)
Quarter: 2017Q3

REPORT INFORMATION
  Report Type: Spontaneous
  Country: US (occurrence: US)
  Receive Date: 20170726
  Receipt Date: 20170922
  Transmission Date: 20171127
  Serious: Yes (Hospitalization)
  Sender: FDA-Public Use
  Company Number: US-ASTRAZENECA-2017SE70285

PATIENT
  Age: 25520 Day
  Sex: Female
  Weight: 54.4 kg

DRUGS (10)
  1. ROSUVASTATIN. [Suspect]
     Active Substance: ROSUVASTATIN
     Indication: BLOOD CHOLESTEROL ABNORMAL
     Dosage: GENERIC 20 MG UNK,
     Route: 048
  2. ROSUVASTATIN. [Suspect]
     Active Substance: ROSUVASTATIN
     Indication: BLOOD CHOLESTEROL ABNORMAL
     Route: 048
     Dates: start: 20170627
  3. PROBIOTIC FLORASTOR [Concomitant]
     Indication: GASTROINTESTINAL DISORDER
     Route: 048
     Dates: start: 201606
  4. MAGNESIUM [Concomitant]
     Active Substance: MAGNESIUM
     Indication: MUSCLE DISORDER
     Route: 048
     Dates: start: 2006
  5. FOLBIC [Concomitant]
     Active Substance: CYANOCOBALAMIN\FOLIC ACID\PYRIDOXINE
     Indication: METHYLENETETRAHYDROFOLATE REDUCTASE GENE MUTATION
     Dosage: DAILY
     Route: 048
  6. ATENOLOL. [Suspect]
     Active Substance: ATENOLOL
     Indication: HEART RATE IRREGULAR
     Route: 048
     Dates: start: 200606
  7. ATENOLOL. [Suspect]
     Active Substance: ATENOLOL
     Indication: HEART RATE IRREGULAR
     Route: 048
  8. BRILINTA [Suspect]
     Active Substance: TICAGRELOR
     Indication: STENT PLACEMENT
     Route: 048
     Dates: start: 20170627
  9. ASPIRIN. [Concomitant]
     Active Substance: ASPIRIN
     Indication: STENT PLACEMENT
     Route: 048
     Dates: start: 20170627
  10. METAMUCIL [Concomitant]
     Active Substance: PLANTAGO SEED
     Indication: ILL-DEFINED DISORDER
     Dosage: ONE TABLESPOON DAILY
     Route: 048
     Dates: start: 201606

REACTIONS (8)
  - Malaise [Unknown]
  - Vascular graft occlusion [Unknown]
  - Fatigue [Unknown]
  - Sleep disorder [Unknown]
  - Weight decreased [Unknown]
  - Haemoglobin decreased [Unknown]
  - Nightmare [Unknown]
  - Hypotension [Unknown]

NARRATIVE: CASE EVENT DATE: 20170625
